FAERS Safety Report 14456920 (Version 1)
Quarter: 2018Q1

REPORT INFORMATION
  Report Type: Spontaneous
  Country: DE (occurrence: DE)
  Receive Date: 20180130
  Receipt Date: 20180130
  Transmission Date: 20180509
  Serious: Yes (Congenital Anomaly, Other)
  Sender: FDA-Public Use
  Company Number: DE-AUROBINDO-AUR-APL-2018-003514

PATIENT
  Age: 1 Day
  Sex: Male
  Weight: 3.9 kg

DRUGS (3)
  1. CITALOPRAM [Suspect]
     Active Substance: CITALOPRAM HYDROBROMIDE
     Indication: PSYCHOTIC DISORDER
     Dosage: 20 [MG/D ]
     Route: 064
     Dates: start: 20160330, end: 20161221
  2. AARANE                             /00082102/ [Concomitant]
     Indication: ASTHMA
     Dosage: IF REQUIRED ()
     Route: 064
  3. FOLIO FORTE [Concomitant]
     Active Substance: FOLIC ACID\VITAMINS
     Indication: PROPHYLAXIS OF NEURAL TUBE DEFECT
     Dosage: 0.8 [MG/D ] ()
     Route: 064
     Dates: start: 20160330, end: 20161221

REACTIONS (4)
  - Large for dates baby [Recovering/Resolving]
  - Limb reduction defect [Not Recovered/Not Resolved]
  - Foetal exposure during pregnancy [Recovering/Resolving]
  - Respiratory disorder neonatal [Recovered/Resolved]

NARRATIVE: CASE EVENT DATE: 20161221
